FAERS Safety Report 5406141-4 (Version None)
Quarter: 2007Q3

REPORT INFORMATION
  Report Type: 
  Country: None (occurrence: None)
  Receive Date: 20070802
  Receipt Date: 20070802
  Transmission Date: 20080115
  Serious: Yes (Life-Threatening, Disabling)
  Sender: FDA-Public Use
  Company Number: None

PATIENT
  Age: 28 Year
  Sex: Male
  Weight: 86.1834 kg

DRUGS (1)
  1. ROBITUSSON [Suspect]
     Dosage: ONE BOTTLE DAILY

REACTIONS (2)
  - DRUG DEPENDENCE [None]
  - DRUG SCREEN POSITIVE [None]
